FAERS Safety Report 13240723 (Version 2)
Quarter: 2017Q1

REPORT INFORMATION
  Report Type: Spontaneous
  Country: GB (occurrence: GB)
  Receive Date: 20170216
  Receipt Date: 20170314
  Transmission Date: 20170428
  Serious: Yes (Other)
  Sender: FDA-Public Use
  Company Number: GB-PFIZER INC-2017063521

PATIENT
  Age: 28 Year
  Sex: Female

DRUGS (4)
  1. PEGVISOMANT [Suspect]
     Active Substance: PEGVISOMANT
     Dosage: 20 MG, 1X/DAY (20 MG, QD)
     Route: 065
  2. OCTREOTIDE ACETATE. [Suspect]
     Active Substance: OCTREOTIDE ACETATE
     Dosage: 20 MG, MONTHLY (20 MG, QMO (EVERY 4 WEEKS))
     Route: 065
  3. PEGVISOMANT [Suspect]
     Active Substance: PEGVISOMANT
     Indication: INSULIN-LIKE GROWTH FACTOR INCREASED
     Dosage: UNK
     Route: 065
  4. OCTREOTIDE ACETATE. [Suspect]
     Active Substance: OCTREOTIDE ACETATE
     Dosage: 30 MG, MONTHLY (30 MG, QMO (EVERY 4 WEEKS))
     Route: 065

REACTIONS (2)
  - Neoplasm progression [Unknown]
  - Pituitary tumour recurrent [Unknown]

NARRATIVE: CASE EVENT DATE: 201101
